FAERS Safety Report 7878030-7 (Version None)
Quarter: 2011Q4

REPORT INFORMATION
  Report Type: 
  Country: None (occurrence: None)
  Receive Date: 20111101
  Receipt Date: 20111017
  Transmission Date: 20120403
  Serious: Yes (Hospitalization)
  Sender: FDA-Public Use
  Company Number: GB-ROCHE-1005236

PATIENT
  Age: 37 Year
  Sex: Male
  Weight: 68.1 kg

DRUGS (5)
  1. VEMURAFENIB [Suspect]
     Indication: METASTATIC MALIGNANT MELANOMA
     Route: 048
     Dates: start: 20111014, end: 20111017
  2. GABAPENTIN [Concomitant]
     Dates: start: 20110901
  3. INFUMORPH [Concomitant]
     Dates: start: 20110901
  4. ORAMORPH SR [Concomitant]
     Dates: start: 20110901
  5. ACETAMINOPHEN [Concomitant]
     Dates: start: 20110901

REACTIONS (1)
  - CONFUSIONAL STATE [None]
